FAERS Safety Report 8081715-3 (Version None)
Quarter: 2012Q1

REPORT INFORMATION
  Report Type: 
  Country: None (occurrence: None)
  Receive Date: 20120130
  Receipt Date: 20120123
  Transmission Date: 20120608
  Serious: Yes (Hospitalization)
  Sender: FDA-Public Use
  Company Number: DK-PFIZER INC-2009259725

PATIENT
  Age: 70 Year
  Sex: Male

DRUGS (9)
  1. PREDNISOLONE [Suspect]
     Indication: PROSTATE CANCER
     Dosage: 5 MG, 2X/DAY
     Route: 048
     Dates: start: 20090810
  2. ACETYLSALICYLIC ACID [Concomitant]
     Indication: THROMBOSIS PROPHYLAXIS
     Dosage: UNK
     Route: 048
     Dates: start: 19930101
  3. SUNITINIB MALATE [Suspect]
     Indication: PROSTATE CANCER
     Dosage: 37.5 MG, 1X/DAY
     Route: 048
     Dates: start: 20090810
  4. IBUPROFEN [Suspect]
     Indication: PAIN
     Dosage: 400 MG, 4X/DAY
     Route: 048
     Dates: start: 20090810, end: 20090824
  5. OXYCONTIN [Concomitant]
     Indication: BONE PAIN
     Dosage: 20 MG, 2X/DAY
     Route: 048
     Dates: start: 20090630
  6. CITALOPRAM [Concomitant]
     Indication: DEPRESSION
     Dosage: UNK
     Route: 048
     Dates: start: 20060101
  7. OXYCODONE HCL [Concomitant]
     Indication: BONE PAIN
     Dosage: 2X/DAY
     Route: 048
     Dates: start: 20090630
  8. FINASTERIDE [Concomitant]
     Indication: DYSURIA
     Dosage: UNK
     Route: 048
     Dates: start: 20090801
  9. LISINOPRIL [Concomitant]
     Indication: HYPERTENSION
     Dosage: UNK
     Route: 048
     Dates: start: 19930101

REACTIONS (1)
  - DEHYDRATION [None]
